APPROVED DRUG PRODUCT: SALONPAS
Active Ingredient: MENTHOL; METHYL SALICYLATE
Strength: 3%;10%
Dosage Form/Route: PATCH;TOPICAL
Application: N022029 | Product #001
Applicant: HISAMITSU PHARMACEUTICAL CO INC
Approved: Feb 20, 2008 | RLD: Yes | RS: Yes | Type: OTC

PATENTS:
Patent 9233184 | Expires: Aug 1, 2027
Patent 8809615 | Expires: Jan 3, 2030